FAERS Safety Report 17289121 (Version 1)
Quarter: 2020Q1

REPORT INFORMATION
  Report Type: Spontaneous
  Country: US (occurrence: US)
  Receive Date: 20200120
  Receipt Date: 20200120
  Transmission Date: 20200409
  Serious: Yes (Life-Threatening, Hospitalization, Other)
  Sender: FDA-Public Use
  Company Number: US-BRACCO-2020US00213

PATIENT
  Age: 75 Year
  Sex: Female

DRUGS (1)
  1. PROHANCE [Suspect]
     Active Substance: GADOTERIDOL
     Indication: MAGNETIC RESONANCE IMAGING BREAST
     Dosage: 12 ML, SINGLE
     Route: 042
     Dates: start: 20200102, end: 20200102

REACTIONS (4)
  - Cardiac arrest [Recovered/Resolved]
  - Renal failure [Recovered/Resolved]
  - Unresponsive to stimuli [Recovered/Resolved]
  - Cardiac disorder [Recovered/Resolved]

NARRATIVE: CASE EVENT DATE: 202001
